FAERS Safety Report 21725698 (Version 1)
Quarter: 2022Q4

REPORT INFORMATION
  Report Type: Spontaneous
  Country: SK (occurrence: SK)
  Receive Date: 20221214
  Receipt Date: 20221214
  Transmission Date: 20230112
  Serious: Yes (Other)
  Sender: FDA-Public Use
  Company Number: SK-SUN PHARMACEUTICAL INDUSTRIES LTD-2022RR-368409

PATIENT
  Age: 66 Year
  Sex: Male

DRUGS (2)
  1. GEMCITABINE [Suspect]
     Active Substance: GEMCITABINE
     Indication: Transitional cell carcinoma
     Dosage: 2000 MILLIGRAM/SQ. METER, ON DAYS 1 AND 8, SIX COURSES
     Route: 042
     Dates: start: 20170328, end: 20170718
  2. CISPLATIN [Suspect]
     Active Substance: CISPLATIN
     Indication: Transitional cell carcinoma
     Dosage: 70 MILLIGRAM/SQ. METER, ON DAY 1, SIX COURSES
     Route: 042
     Dates: start: 20170328, end: 20170718

REACTIONS (3)
  - Anaemia [Unknown]
  - Fatigue [Unknown]
  - Disease recurrence [Unknown]
